FAERS Safety Report 5280219-0 (Version None)
Quarter: 2007Q1

REPORT INFORMATION
  Report Type: 
  Country: None (occurrence: None)
  Receive Date: 20070329
  Receipt Date: 20070323
  Transmission Date: 20070707
  Serious: Yes (Life-Threatening)
  Sender: FDA-Public Use
  Company Number: DE-ROCHE-489216

PATIENT
  Age: 58 Year
  Sex: Female

DRUGS (3)
  1. ZENAPAX [Suspect]
     Route: 065
     Dates: start: 20070215
  2. FK 506 [Suspect]
     Route: 048
     Dates: start: 20070215
  3. HYDROCORTISON [Concomitant]

REACTIONS (1)
  - SEPSIS [None]
